FAERS Safety Report 15870715 (Version 3)
Quarter: 2019Q1

REPORT INFORMATION
  Report Type: Report from Study
  Country: None (occurrence: CO)
  Receive Date: 20190126
  Receipt Date: 20190315
  Transmission Date: 20190417
  Serious: Yes (Other)
  Sender: FDA-Public Use
  Company Number: CO-ABBVIE-18K-036-2500348-00

PATIENT
  Age: 36 Year
  Sex: Female

DRUGS (1)
  1. HUMIRA [Suspect]
     Active Substance: ADALIMUMAB
     Indication: PRODUCT USED FOR UNKNOWN INDICATION
     Dosage: 7 MONTHS DISCONTINUATION DUE TO URINARY INFECTION
     Route: 058
     Dates: start: 20160711, end: 20180710

REACTIONS (6)
  - Renal cyst [Unknown]
  - Nephrolithiasis [Unknown]
  - Urinary tract infection [Unknown]
  - Red blood cell sedimentation rate abnormal [Unknown]
  - Neck pain [Recovering/Resolving]
  - Osteitis condensans [Unknown]

NARRATIVE: CASE EVENT DATE: 201809
